FAERS Safety Report 17974314 (Version 1)
Quarter: 2020Q3

REPORT INFORMATION
  Report Type: Spontaneous
  Country: CN (occurrence: CN)
  Receive Date: 20200702
  Receipt Date: 20200702
  Transmission Date: 20201103
  Serious: Yes (Hospitalization)
  Sender: FDA-Public Use
  Company Number: CN-PFIZER INC-2020252401

PATIENT
  Age: 65 Year
  Sex: Female

DRUGS (1)
  1. UNASYN [Suspect]
     Active Substance: AMPICILLIN SODIUM\SULBACTAM SODIUM
     Indication: ANTI-INFECTIVE THERAPY
     Dosage: 3 G, 4X/DAY
     Route: 041
     Dates: start: 20200530, end: 20200619

REACTIONS (7)
  - Abdominal pain [Recovering/Resolving]
  - Drug eruption [Recovering/Resolving]
  - Wound complication [Recovering/Resolving]
  - Chest pain [Recovering/Resolving]
  - Dermatitis allergic [Recovering/Resolving]
  - Pyrexia [Recovering/Resolving]
  - Chest discomfort [Recovering/Resolving]

NARRATIVE: CASE EVENT DATE: 20200614
